FAERS Safety Report 18795098 (Version 1)
Quarter: 2021Q1

REPORT INFORMATION
  Report Type: Spontaneous
  Country: US (occurrence: US)
  Receive Date: 20210127
  Receipt Date: 20210127
  Transmission Date: 20210419
  Serious: Yes (Hospitalization)
  Sender: FDA-Public Use
  Company Number: US-ELI_LILLY_AND_COMPANY-US202101006904

PATIENT
  Age: 87 Year
  Sex: Female

DRUGS (2)
  1. BASAGLAR [Suspect]
     Active Substance: INSULIN GLARGINE
     Indication: TYPE 2 DIABETES MELLITUS
     Dosage: 45 U, DAILY
     Route: 065
     Dates: start: 2019
  2. NOVOLOG [Concomitant]
     Active Substance: INSULIN ASPART
     Indication: DIABETES MELLITUS
     Dosage: 45 U, UNKNOWN

REACTIONS (4)
  - Blood glucose increased [Recovering/Resolving]
  - Anti-GAD antibody [Recovering/Resolving]
  - Illness [Unknown]
  - Abdominal distension [Unknown]

NARRATIVE: CASE EVENT DATE: 202010
